FAERS Safety Report 25980034 (Version 1)
Quarter: 2025Q4

REPORT INFORMATION
  Report Type: Spontaneous
  Country: US (occurrence: US)
  Receive Date: 20251030
  Receipt Date: 20251030
  Transmission Date: 20260118
  Serious: No
  Sender: LABORATOIRES SERB
  Company Number: US-SERB S.A.S.-2187563

PATIENT
  Age: 63 Year
  Sex: Male

DRUGS (2)
  1. CROFAB [Suspect]
     Active Substance: AGKISTRODON PISCIVORUS IMMUNE FAB ANTIVENIN (OVINE)\CROTALUS ADAMANTEUS IMMUNE FAB ANTIVENIN (OVINE)
     Indication: Snake bite
  2. METHYLPREDNISOLONE [Concomitant]
     Active Substance: METHYLPREDNISOLONE

REACTIONS (6)
  - Oedema peripheral [Not Recovered/Not Resolved]
  - Off label use [Unknown]
  - Product availability issue [Unknown]
  - Pain [Recovering/Resolving]
  - Joint stiffness [Not Recovered/Not Resolved]
  - Skin burning sensation [Not Recovered/Not Resolved]

NARRATIVE: CASE EVENT DATE: 20241124
